FAERS Safety Report 7630813-4 (Version None)
Quarter: 2011Q3

REPORT INFORMATION
  Report Type: 
  Country: None (occurrence: None)
  Receive Date: 20110723
  Receipt Date: 20110719
  Transmission Date: 20111222
  Serious: Yes (Other)
  Sender: FDA-Public Use
  Company Number: PH-ABBOTT-11P-128-0839802-00

PATIENT
  Age: 33 Year
  Sex: Female

DRUGS (1)
  1. SEVOFLURANE [Suspect]
     Indication: GENERAL ANAESTHESIA
     Dosage: 2 TO 4 MAC
     Route: 055
     Dates: start: 20110718, end: 20110718

REACTIONS (2)
  - BLOOD PRESSURE INCREASED [None]
  - HEART RATE INCREASED [None]
